FAERS Safety Report 5097958-7 (Version None)
Quarter: 2006Q3

REPORT INFORMATION
  Report Type: 
  Country: None (occurrence: None)
  Receive Date: 20060905
  Receipt Date: 20060825
  Transmission Date: 20061208
  Serious: Yes (Other)
  Sender: FDA-Public Use
  Company Number: GXKR2006GB05213

PATIENT
  Sex: Female

DRUGS (5)
  1. ENALAPRIL MALEATE [Suspect]
     Dosage: ORAL
     Route: 048
     Dates: end: 20050820
  2. FELODIPINE [Suspect]
     Dosage: ORAL
     Route: 048
     Dates: end: 20050820
  3. BECLOMETHASONE DIPROPIONATE [Concomitant]
  4. ACETAMINOPHEN [Concomitant]
  5. SALBUTAMOL (SALBUTAMOL) [Concomitant]

REACTIONS (1)
  - FALL [None]
